FAERS Safety Report 13838523 (Version 1)
Quarter: 2017Q3

REPORT INFORMATION
  Report Type: Spontaneous
  Country: US (occurrence: US)
  Receive Date: 20170804
  Receipt Date: 20170804
  Transmission Date: 20171127
  Serious: Yes (Disabling)
  Sender: FDA-Public Use
  Company Number: None

PATIENT
  Age: 76 Year
  Sex: Female
  Weight: 87.75 kg

DRUGS (7)
  1. VITAMIN C [Concomitant]
     Active Substance: ASCORBIC ACID
  2. ELIQUIS [Concomitant]
     Active Substance: APIXABAN
  3. CENTRUM SENIOR [Concomitant]
  4. HYZAAR [Concomitant]
     Active Substance: HYDROCHLOROTHIAZIDE\LOSARTAN POTASSIUM
  5. VITAMIN D [Concomitant]
     Active Substance: CHOLECALCIFEROL
  6. PROPAFENONE HCL ER 225 MG C [Suspect]
     Active Substance: PROPAFENONE HYDROCHLORIDE
     Indication: ATRIAL FIBRILLATION
     Dosage: ?          QUANTITY:1 TABLET(S);?
     Route: 048
     Dates: start: 20170127
  7. METROPOLO [Concomitant]

REACTIONS (7)
  - Sinus disorder [None]
  - Bursitis [None]
  - Altered state of consciousness [None]
  - Headache [None]
  - Neck pain [None]
  - Sciatica [None]
  - Back pain [None]

NARRATIVE: CASE EVENT DATE: 20170717
